FAERS Safety Report 6917144-2 (Version None)
Quarter: 2010Q3

REPORT INFORMATION
  Report Type: 
  Country: None (occurrence: None)
  Receive Date: 20100810
  Receipt Date: 20100809
  Transmission Date: 20110219
  Serious: Yes (Other)
  Sender: FDA-Public Use
  Company Number: US-WYE-H15405410

PATIENT
  Sex: Female

DRUGS (9)
  1. PREPARATION H MEDICATED WIPES [Suspect]
     Indication: ANORECTAL DISCOMFORT
     Dosage: TWO WIPES PER DAY
     Route: 065
     Dates: start: 20091001, end: 20091001
  2. MEVACOR [Concomitant]
     Route: 048
  3. POTASSIUM [Concomitant]
     Route: 048
  4. DYAZIDE [Concomitant]
  5. ZINC [Concomitant]
     Dosage: UNKNOWN
     Route: 048
  6. VITAMIN B-12 [Concomitant]
     Dosage: UNKNOWN
     Route: 048
  7. ALLEGRA [Concomitant]
     Dosage: UNKNOWN
     Route: 048
  8. VASOTEC [Concomitant]
     Route: 048
  9. CALCIUM [Concomitant]
     Dosage: UNKNOWN
     Route: 048

REACTIONS (12)
  - CONDITION AGGRAVATED [None]
  - DECUBITUS ULCER [None]
  - ECZEMA [None]
  - ESCHAR [None]
  - EXCORIATION [None]
  - FUNGAL SKIN INFECTION [None]
  - IMPETIGO [None]
  - PRURITUS [None]
  - RASH PAPULAR [None]
  - SKIN BURNING SENSATION [None]
  - SKIN EROSION [None]
  - SLEEP DISORDER [None]
